FAERS Safety Report 4518807-9 (Version None)
Quarter: 2004Q4

REPORT INFORMATION
  Report Type: 
  Country: None (occurrence: None)
  Receive Date: 20041104
  Receipt Date: 20040722
  Transmission Date: 20050328
  Serious: Yes (Other)
  Sender: FDA-Public Use
  Company Number: PHEH2004US08042

PATIENT

DRUGS (5)
  1. ESTRADIOL [Suspect]
     Indication: HORMONE REPLACEMENT THERAPY
  2. ESTROGEN (ESTROGEN) TRANS-THERAPEUTIC-SYSTEM [Suspect]
     Indication: HORMONE REPLACEMENT THERAPY
  3. PREMPRO [Suspect]
  4. PREMARIN [Suspect]
  5. MEDROXYPROGESTERONE ACETATE [Suspect]

REACTIONS (1)
  - BREAST CANCER [None]
